FAERS Safety Report 8605057-X (Version None)
Quarter: 2012Q3

REPORT INFORMATION
  Report Type: 
  Country: None (occurrence: None)
  Receive Date: 20120820
  Receipt Date: 20120817
  Transmission Date: 20120928
  Serious: Yes (Disabling, Other)
  Sender: FDA-Public Use
  Company Number: PHEH2012US012892

PATIENT
  Sex: Female
  Weight: 54.422 kg

DRUGS (4)
  1. RECLAST [Suspect]
     Indication: OSTEOPOROSIS
     Route: 042
     Dates: start: 20110804
  2. CHEMOTHERAPEUTICS [Concomitant]
  3. VITAMIN TAB [Concomitant]
  4. MINERALS NOS [Concomitant]

REACTIONS (3)
  - TOOTH LOSS [None]
  - CEREBROVASCULAR ACCIDENT [None]
  - CYSTITIS [None]
